FAERS Safety Report 7747381-9 (Version None)
Quarter: 2011Q3

REPORT INFORMATION
  Report Type: 
  Country: None (occurrence: None)
  Receive Date: 20110913
  Receipt Date: 20110907
  Transmission Date: 20111222
  Serious: Yes (Disabling, Other)
  Sender: FDA-Public Use
  Company Number: US-GLAXOSMITHKLINE-A0943728A

PATIENT
  Age: 38 Year
  Sex: Female

DRUGS (2)
  1. ATIVAN [Concomitant]
  2. VALTREX [Suspect]
     Indication: GENITAL HERPES
     Dosage: 1000MG PER DAY
     Route: 048
     Dates: start: 20110803, end: 20110817

REACTIONS (3)
  - SELF-INJURIOUS IDEATION [None]
  - VIOLENCE-RELATED SYMPTOM [None]
  - THINKING ABNORMAL [None]
